FAERS Safety Report 4485235-4 (Version None)
Quarter: 2004Q4

REPORT INFORMATION
  Report Type: 
  Country: None (occurrence: None)
  Receive Date: 20041026
  Receipt Date: 20040816
  Transmission Date: 20050328
  Serious: No
  Sender: FDA-Public Use
  Company Number: US-BRISTOL-MYERS SQUIBB COMPANY-12673000

PATIENT
  Sex: Female

DRUGS (6)
  1. GLUCOPHAGE XR [Suspect]
     Dates: start: 20040722
  2. CARDIZEM CD [Concomitant]
  3. TENORMIN [Concomitant]
  4. BENICAR [Concomitant]
  5. LIPITOR [Concomitant]
  6. ASPIRIN [Concomitant]

REACTIONS (6)
  - BLOOD GLUCOSE INCREASED [None]
  - FEELING ABNORMAL [None]
  - GASTROINTESTINAL PAIN [None]
  - HEADACHE [None]
  - INSOMNIA [None]
  - STOMACH DISCOMFORT [None]
